FAERS Safety Report 21478036 (Version 1)
Quarter: 2022Q4

REPORT INFORMATION
  Report Type: Report from Study
  Country: US (occurrence: US)
  Receive Date: 20221019
  Receipt Date: 20221019
  Transmission Date: 20230113
  Serious: No
  Sender: FDA-Public Use
  Company Number: US-ABBVIE-4158772

PATIENT
  Sex: Male

DRUGS (1)
  1. SKYRIZI [Suspect]
     Active Substance: RISANKIZUMAB-RZAA
     Indication: Psoriasis
     Dosage: WEEK 4?150 MILLIGRAM/MILLILITERS
     Route: 058
     Dates: start: 20220803

REACTIONS (2)
  - General physical condition abnormal [Unknown]
  - Psoriatic arthropathy [Unknown]
